FAERS Safety Report 22518671 (Version 1)
Quarter: 2023Q2

REPORT INFORMATION
  Report Type: Spontaneous
  Country: US (occurrence: US)
  Receive Date: 20230605
  Receipt Date: 20230605
  Transmission Date: 20230721
  Serious: Yes (Hospitalization, Other)
  Sender: FDA-Public Use
  Company Number: US-UCBSA-2023003297

PATIENT
  Age: 61 Year
  Sex: Female

DRUGS (2)
  1. CIMZIA [Suspect]
     Active Substance: CERTOLIZUMAB PEGOL
     Indication: Psoriatic arthropathy
     Dosage: 200 MILLIGRAM, UNK
     Route: 058
  2. CIMZIA [Suspect]
     Active Substance: CERTOLIZUMAB PEGOL
     Dosage: 400 MILLIGRAM
     Route: 058
     Dates: start: 201812, end: 202303

REACTIONS (10)
  - Hospitalisation [Unknown]
  - Cardiac failure congestive [Unknown]
  - Stomatitis [Unknown]
  - Oropharyngeal pain [Unknown]
  - Cough [Unknown]
  - Dysphonia [Unknown]
  - Pollakiuria [Unknown]
  - Joint swelling [Unknown]
  - Upper respiratory tract infection [Unknown]
  - Vomiting [Unknown]

NARRATIVE: CASE EVENT DATE: 20230114
